FAERS Safety Report 6613690-X (Version None)
Quarter: 2010Q1

REPORT INFORMATION
  Report Type: 
  Country: None (occurrence: None)
  Receive Date: 20100224
  Receipt Date: 20100209
  Transmission Date: 20100710
  Serious: Yes (Hospitalization)
  Sender: FDA-Public Use
  Company Number: B0633602A

PATIENT
  Age: 5 Year
  Sex: Female

DRUGS (5)
  1. ETOPOSIDE [Suspect]
     Indication: ACUTE MYELOID LEUKAEMIA
  2. DAUNORUBICIN (FORMULATION UNKNOWN) [Suspect]
     Indication: ACUTE MYELOID LEUKAEMIA
  3. THIOGUANINE [Suspect]
     Indication: ACUTE MYELOID LEUKAEMIA
  4. CYTARABINE [Suspect]
     Indication: ACUTE MYELOID LEUKAEMIA
  5. DEXAMETHASONE [Suspect]
     Indication: ACUTE MYELOID LEUKAEMIA

REACTIONS (8)
  - CONSTIPATION [None]
  - CRYPTOSPORIDIOSIS INFECTION [None]
  - CULTURE STOOL POSITIVE [None]
  - DRUG INEFFECTIVE [None]
  - GASTROINTESTINAL STOMA COMPLICATION [None]
  - MEGACOLON [None]
  - PNEUMATOSIS [None]
  - TRICHURIASIS [None]
